FAERS Safety Report 17925997 (Version 2)
Quarter: 2020Q2

REPORT INFORMATION
  Report Type: Report from Study
  Country: None (occurrence: DE)
  Receive Date: 20200623
  Receipt Date: 20200629
  Transmission Date: 20200714
  Serious: Yes (Hospitalization)
  Sender: FDA-Public Use
  Company Number: DE-ABBVIE-20K-062-3452931-00

PATIENT
  Age: 70 Year
  Sex: Female
  Weight: 49.3 kg

DRUGS (37)
  1. NOVAMINSULFON [Concomitant]
     Active Substance: METAMIZOLE
     Indication: PRODUCT USED FOR UNKNOWN INDICATION
  2. MADOPAR LT [Concomitant]
     Active Substance: BENSERAZIDE HYDROCHLORIDE\LEVODOPA
     Indication: PARKINSONIAN CRISIS
     Dosage: 100MG/25MG, 1 TABLET/DAY, MAX. DOSE: 2 TABLETS/DAY
  3. VIGANTOLETTEN [Concomitant]
     Active Substance: CHOLECALCIFEROL
     Dosage: IN SUMMER 1-0-0-0
  4. IBUFLAM [Concomitant]
     Indication: BONE PAIN
     Dosage: IN CASE OF PAIN } UP TO 3-4X/DAY
  5. NOVALGIN [Concomitant]
     Indication: PAIN
     Dosage: 500 MG/ML, DROPS, 4X30 DROPS/DAY, IF NECESSARY +2X20 DROPS
  6. LORMETAZEPAM RATIOPHARM [Concomitant]
     Indication: RESTLESSNESS
     Dosage: 0.5 MG, WHEN ANYTHING ELSE DID NOT HELP, MAX 3, 1X/DAY, IF NEEDED
  7. BUSCOPAN PLUS [Concomitant]
     Active Substance: ACETAMINOPHEN\BUTYLSCOPOLAMINE BROMIDE
     Indication: ABDOMINAL PAIN
  8. MAGNESIUM VERLA [Concomitant]
     Active Substance: MAGNESIUM
     Indication: SLEEP DISORDER
  9. VIGANTOLETTEN [Concomitant]
     Active Substance: CHOLECALCIFEROL
     Indication: VITAMIN D DEFICIENCY
     Dosage: FROM OCTOBER TILL END OF APRIL 2-0-0-0
  10. MOVICOL [Concomitant]
     Active Substance: POLYETHYLENE GLYCOL 3350\POTASSIUM CHLORIDE\SODIUM BICARBONATE\SODIUM CHLORIDE
     Indication: BOWEL MOVEMENT IRREGULARITY
  11. PREGABADOR [Concomitant]
     Active Substance: PREGABALIN
     Indication: RESTLESSNESS
  12. PREGABADOR [Concomitant]
     Active Substance: PREGABALIN
     Indication: PANIC REACTION
  13. TORASEMID [Concomitant]
     Active Substance: TORSEMIDE
     Indication: DIURETIC THERAPY
  14. BUSCOPAN PLUS [Concomitant]
     Active Substance: ACETAMINOPHEN\BUTYLSCOPOLAMINE BROMIDE
     Dosage: PACKAGE: 20 PIECE, N1, IF NEEDED } 3-4X/DAY
  15. CALMVALERA HEVERT [Concomitant]
     Indication: RESTLESSNESS
  16. NIFEDIPIN [Concomitant]
     Active Substance: NIFEDIPINE
     Indication: BLOOD PRESSURE INCREASED
     Dosage: 20MG/ML DROPS, IF NEEDED,7?? RR 170-200, 10?? RR}200 SY
  17. MACROGOL [Concomitant]
     Active Substance: POLYETHYLENE GLYCOLS
     Indication: PRODUCT USED FOR UNKNOWN INDICATION
  18. NOVALGIN [Concomitant]
     Indication: PYREXIA
  19. DUODOPA [Suspect]
     Active Substance: CARBIDOPA\LEVODOPA
     Indication: PARKINSON^S DISEASE
     Dosage: MD 3.5 ML; CRD 2.4 ML/ H; CRN 1.5 ML/ H; ED 1.8 ML
     Route: 050
     Dates: start: 201205
  20. DUODOPA [Suspect]
     Active Substance: CARBIDOPA\LEVODOPA
     Dosage: 20MG/ML4:30-23;2.4ML/H;23:00-4:30:1.8ML/H;ED2ML(IF NEEDED3-4DAILY)DAILY1DOSEADMIN,20MG/ML
     Route: 050
  21. PANTOPRAZOL AL [Concomitant]
     Active Substance: PANTOPRAZOLE SODIUM
     Indication: PROPHYLAXIS
     Dosage: 40 MG FOR EMPTY STOMACH
  22. CALMVALERA HEVERT [Concomitant]
     Indication: ANXIETY
     Dosage: 3X40 DROPS
  23. AMBRAX [Concomitant]
     Indication: PRODUCT USED FOR UNKNOWN INDICATION
  24. IBUFLAM [Concomitant]
     Indication: ARTHRALGIA
  25. MOVICOL [Concomitant]
     Active Substance: POLYETHYLENE GLYCOL 3350\POTASSIUM CHLORIDE\SODIUM BICARBONATE\SODIUM CHLORIDE
     Indication: CONSTIPATION
     Dosage: ONCE A DAY, REGULARLY, FRAGRANCE FREE
  26. ZOLPIDEM RATIOPHARM [Concomitant]
     Indication: SLEEP DISORDER
     Dosage: ONE A DAY, THERE IS A CHANGE HERE
  27. LYRICA [Concomitant]
     Active Substance: PREGABALIN
     Indication: PRODUCT USED FOR UNKNOWN INDICATION
  28. MIRTAZAPIN [Concomitant]
     Active Substance: MIRTAZAPINE
     Indication: PRODUCT USED FOR UNKNOWN INDICATION
  29. QUETIAPIN RATIOPHARM [Concomitant]
     Indication: RESTLESSNESS
     Dosage: 1 TABLET/DAY, 25MG, MAX. DOSE: 2 TABLETS/DAY
  30. PREGABADOR [Concomitant]
     Active Substance: PREGABALIN
     Indication: ANXIETY
  31. MADOPAR DEPOT [Concomitant]
     Active Substance: BENSERAZIDE HYDROCHLORIDE\LEVODOPA
     Indication: PARKINSON^S DISEASE
     Dosage: 100MG/25MG
  32. RAMILICH [Concomitant]
     Active Substance: RAMIPRIL
     Indication: BLOOD PRESSURE MEASUREMENT
  33. CALMVALERA HEVERT [Concomitant]
     Indication: PANIC REACTION
  34. YOMOGI [Concomitant]
     Indication: PRODUCT USED FOR UNKNOWN INDICATION
  35. RAMILICH [Concomitant]
     Active Substance: RAMIPRIL
     Indication: CARDIAC DISORDER
  36. LORAZEPAM. [Concomitant]
     Active Substance: LORAZEPAM
     Indication: PRODUCT USED FOR UNKNOWN INDICATION
  37. QUETIAPIN RATIOPHARM [Concomitant]
     Indication: SLEEP DISORDER

REACTIONS (13)
  - Intentional product misuse [Unknown]
  - Blood albumin increased [Unknown]
  - Mean cell haemoglobin concentration decreased [Unknown]
  - Blood selenium decreased [Recovered/Resolved]
  - Alanine aminotransferase decreased [Unknown]
  - Haemoglobin decreased [Recovered/Resolved]
  - Haematocrit decreased [Unknown]
  - Panic attack [Recovered/Resolved]
  - Blood selenium decreased [Unknown]
  - Intentional misuse of drug delivery system [Unknown]
  - Red blood cell count decreased [Unknown]
  - Haemoglobin decreased [Unknown]
  - Escherichia infection [Unknown]

NARRATIVE: CASE EVENT DATE: 20200115
